FAERS Safety Report 9960826 (Version 1)
Quarter: 2014Q1

REPORT INFORMATION
  Report Type: Spontaneous
  Country: US (occurrence: US)
  Receive Date: 20140305
  Receipt Date: 20140305
  Transmission Date: 20141002
  Serious: No
  Sender: FDA-Public Use
  Company Number: US-ABBVIE-13P-163-1109027-00

PATIENT
  Sex: Male

DRUGS (3)
  1. HUMIRA [Suspect]
     Indication: ARTHRITIS
     Dates: end: 201306
  2. UNNAMED MEDICATION [Concomitant]
     Indication: BLOOD CHOLESTEROL
     Dates: end: 201306
  3. UNNAMED MEDICATION [Concomitant]
     Indication: PAIN
     Dates: end: 201306

REACTIONS (4)
  - Erythema [Recovering/Resolving]
  - Pruritus [Recovering/Resolving]
  - Hypersensitivity [Recovering/Resolving]
  - Fungal skin infection [Not Recovered/Not Resolved]
